FAERS Safety Report 13754307 (Version 1)
Quarter: 2017Q3

REPORT INFORMATION
  Report Type: Spontaneous
  Country: US (occurrence: US)
  Receive Date: 20170714
  Receipt Date: 20170714
  Transmission Date: 20171127
  Serious: Yes (Other)
  Sender: FDA-Public Use
  Company Number: None

PATIENT
  Age: 80 Year
  Sex: Female
  Weight: 68.04 kg

DRUGS (9)
  1. LOSARTAN. [Concomitant]
     Active Substance: LOSARTAN
  2. MULTI VIT [Concomitant]
  3. AMLODIPINE [Concomitant]
     Active Substance: AMLODIPINE BESYLATE
  4. VALIUM [Concomitant]
     Active Substance: DIAZEPAM
  5. ASPIRIN. [Concomitant]
     Active Substance: ASPIRIN
  6. LEVOFLOXACIN 750MG TABLETS SUB. FOR LEVAQUIN 750MG [Suspect]
     Active Substance: LEVOFLOXACIN
     Indication: PNEUMONIA
     Dosage: 10 PILLS 1 EA. DAY MOUTH - SAME TIME EVERY DAY
     Route: 048
     Dates: start: 20160120, end: 20160129
  7. OMEPRAZOLE. [Concomitant]
     Active Substance: OMEPRAZOLE
  8. BYSTOLIC [Concomitant]
     Active Substance: NEBIVOLOL HYDROCHLORIDE
  9. NITROGLYCERIN. [Concomitant]
     Active Substance: NITROGLYCERIN

REACTIONS (11)
  - Arthralgia [None]
  - Blood pressure increased [None]
  - Joint swelling [None]
  - Hypertension [None]
  - Hypoaesthesia [None]
  - Nervousness [None]
  - Musculoskeletal pain [None]
  - Depression [None]
  - Pain in extremity [None]
  - Anxiety [None]
  - Gait disturbance [None]

NARRATIVE: CASE EVENT DATE: 20170626
